FAERS Safety Report 7618243-2 (Version None)
Quarter: 2011Q3

REPORT INFORMATION
  Report Type: 
  Country: None (occurrence: None)
  Receive Date: 20110718
  Receipt Date: 20110708
  Transmission Date: 20111222
  Serious: Yes (Hospitalization)
  Sender: FDA-Public Use
  Company Number: DE-GLAXOSMITHKLINE-B0722394B

PATIENT
  Age: 50 Year
  Sex: Female
  Weight: 70 kg

DRUGS (3)
  1. LAPATINIB [Suspect]
     Indication: BREAST CANCER
     Dosage: 1250MG PER DAY
     Route: 048
     Dates: start: 20110504, end: 20110629
  2. DOXORUBICIN HCL [Suspect]
     Indication: BREAST CANCER
     Dosage: 110MG EVERY 3 WEEKS
     Route: 042
     Dates: start: 20110504
  3. PACLITAXEL [Suspect]
     Indication: BREAST CANCER
     Dosage: 322MG EVERY 3 WEEKS
     Route: 042
     Dates: start: 20110504

REACTIONS (1)
  - SUPRAVENTRICULAR TACHYCARDIA [None]
